FAERS Safety Report 8996695 (Version 1)
Quarter: 2013Q1

REPORT INFORMATION
  Report Type: Spontaneous
  Country: GB (occurrence: GB)
  Receive Date: 20130104
  Receipt Date: 20130104
  Transmission Date: 20140127
  Serious: Yes (Death, Other)
  Sender: FDA-Public Use
  Company Number: GB-B.I. PHARMACEUTICALS,INC./RIDGEFIELD-2013-UK-00002UK

PATIENT
  Age: 88 Year
  Sex: Female
  Weight: 52 kg

DRUGS (8)
  1. DABIGATRAN [Suspect]
     Indication: ATRIAL FIBRILLATION
     Dosage: 220 MG
     Route: 048
     Dates: start: 20120620, end: 20121016
  2. BISOPROLOL [Concomitant]
  3. FUROSEMIDE [Concomitant]
  4. MIRTAZAPINE [Concomitant]
  5. PARACETAMOL [Concomitant]
  6. RAMIPRIL [Concomitant]
     Dosage: 5 MG
  7. SPIRONOLACTONE [Concomitant]
  8. STRONTIUM RANELATE [Concomitant]

REACTIONS (3)
  - Thrombosis mesenteric vessel [Fatal]
  - Intestinal infarction [Fatal]
  - Rectal haemorrhage [Fatal]
